FAERS Safety Report 9678206 (Version 2)
Quarter: 2013Q4

REPORT INFORMATION
  Report Type: Spontaneous
  Country: US (occurrence: None)
  Receive Date: 20131106
  Receipt Date: 20131126
  Transmission Date: 20140711
  Serious: Yes (Hospitalization, Other)
  Sender: FDA-Public Use
  Company Number: UTC-038577

PATIENT
  Age: 63 Year
  Sex: Male
  Weight: 88.63 kg

DRUGS (4)
  1. REMODULIN (10 MILLIGRAM/MILLILITERS, INJECTION FOR INFUSION) (TREPROSTINIL SODIUM) [Suspect]
     Indication: COR PULMONALE CHRONIC
     Dosage: 113.04 UG/KG ( 0.0785 UG/KG, 1 IN 1 MIN) SUBCUTANEOUS
     Route: 058
     Dates: start: 20130412
  2. REVATIO (SILDENAFIL CITRATE) (UNKNOWN) (SILDENAFIL CITRATE) [Suspect]
     Indication: PULMONARY HYPERTENSION
     Dosage: 30 MG ( 30 MG, 1 IN 1 D)
     Dates: start: 2011
  3. LETAIRIS (AMBRISENTAN) (TABLET) (AMBRISENTAN) [Suspect]
     Indication: PULMONARY ARTERIAL HYPERTENSION
     Dosage: 5 MG ( 5 MG, 1 IN 1 D)
     Dates: start: 20120829
  4. WARFARIN (UNKNOWN) [Concomitant]

REACTIONS (7)
  - Pulmonary hypertension [None]
  - Lung transplant [None]
  - Endotracheal intubation [None]
  - Depressed level of consciousness [None]
  - Oxygen saturation decreased [None]
  - Dyspnoea [None]
  - Pulmonary artery stenosis [None]
